FAERS Safety Report 4672598-X (Version None)
Quarter: 2005Q2

REPORT INFORMATION
  Report Type: 
  Country: None (occurrence: None)
  Receive Date: 20050524
  Receipt Date: 20050513
  Transmission Date: 20051028
  Serious: Yes (Life-Threatening)
  Sender: FDA-Public Use
  Company Number: BE-GLAXOSMITHKLINE-B0380963A

PATIENT
  Age: 42 Year
  Sex: Female
  Weight: 90 kg

DRUGS (2)
  1. PLACEBO [Suspect]
     Route: 048
     Dates: start: 20050511, end: 20050511
  2. ONDANSETRON [Suspect]
     Dosage: 4MG SINGLE DOSE
     Route: 042
     Dates: start: 20050511

REACTIONS (1)
  - HAEMORRHAGE [None]
